FAERS Safety Report 5569871-X (Version None)
Quarter: 2007Q4

REPORT INFORMATION
  Report Type: 
  Country: None (occurrence: None)
  Receive Date: 20071220
  Receipt Date: 20070816
  Transmission Date: 20080405
  Serious: No
  Sender: FDA-Public Use
  Company Number: US-ABBOTT-07P-163-0378518-00

PATIENT
  Sex: Female

DRUGS (1)
  1. OMNICEF [Suspect]
     Indication: ABSCESS LIMB
     Dosage: X 5 DAYS
     Route: 048
     Dates: start: 20060501, end: 20060501

REACTIONS (3)
  - DIARRHOEA [None]
  - RASH [None]
  - URTICARIA [None]
